FAERS Safety Report 13419740 (Version 1)
Quarter: 2017Q2

REPORT INFORMATION
  Report Type: Spontaneous
  Country: US (occurrence: US)
  Receive Date: 20170407
  Receipt Date: 20170407
  Transmission Date: 20170830
  Serious: No
  Sender: FDA-Public Use
  Company Number: US-PFIZER INC-2017145201

PATIENT
  Sex: Female

DRUGS (2)
  1. TOREMIFENE [Concomitant]
     Active Substance: TOREMIFENE
     Dosage: UNK
     Dates: start: 20160526
  2. SUTENT [Suspect]
     Active Substance: SUNITINIB MALATE
     Indication: DESMOID TUMOUR
     Dosage: 25 MG, DAILY
     Route: 048
     Dates: start: 20160401, end: 20160601

REACTIONS (2)
  - Product use in unapproved indication [Unknown]
  - Pain in jaw [Unknown]

NARRATIVE: CASE EVENT DATE: 20160401
